FAERS Safety Report 4277678-9 (Version None)
Quarter: 2004Q1

REPORT INFORMATION
  Report Type: 
  Country: None (occurrence: None)
  Receive Date: 20040121
  Receipt Date: 20040106
  Transmission Date: 20041129
  Serious: Yes (Death, Life-Threatening, Hospitalization)
  Sender: FDA-Public Use
  Company Number: GBS031214116

PATIENT
  Age: 79 Year
  Sex: Male

DRUGS (8)
  1. OLANZAPINE [Suspect]
     Indication: DEMENTIA
     Dosage: 5 MG
     Dates: end: 20031110
  2. TRAZODONE [Concomitant]
  3. SIMVASTATIN [Concomitant]
  4. BRICANYL [Concomitant]
  5. ISOSORBIDE MONONITRATE [Concomitant]
  6. ACETAMINOPHEN [Concomitant]
  7. INFLUENZA VIRUS VACCINE [Concomitant]
  8. PERINDOPRIL [Concomitant]

REACTIONS (1)
  - LEUKOPENIA [None]
